FAERS Safety Report 8816651 (Version 1)
Quarter: 2012Q4

REPORT INFORMATION
  Report Type: Spontaneous
  Country: HU (occurrence: None)
  Receive Date: 20120928
  Receipt Date: 20120928
  Transmission Date: 20130627
  Serious: Yes (Hospitalization, Other)
  Sender: FDA-Public Use
  Company Number: VAL_00859_2012

PATIENT
  Age: 53 Year
  Sex: Female

DRUGS (7)
  1. CARBAMAZEPINE [Suspect]
     Indication: PRODUCT USED FOR UNKNOWN INDICATION
  2. LITHIUM CARBONATE [Suspect]
     Indication: SUICIDE ATTEMPT
  3. QUETIAPINE [Suspect]
     Indication: PRODUCT USED FOR UNKNOWN INDICATION
  4. ATORVASTATIN [Concomitant]
  5. LEVOTHYROXIN [Concomitant]
  6. CLONAZEPAM [Concomitant]
  7. CINOLAZEPAM [Concomitant]

REACTIONS (11)
  - Tremor [None]
  - Sinus bradycardia [None]
  - Nodal rhythm [None]
  - Atrioventricular block second degree [None]
  - Sinus arrest [None]
  - Left ventricular hypertrophy [None]
  - Left atrial dilatation [None]
  - Aortic valve incompetence [None]
  - Electrocardiogram T wave inversion [None]
  - Electrocardiogram repolarisation abnormality [None]
  - Obesity [None]
